FAERS Safety Report 6646531-5 (Version None)
Quarter: 2010Q1

REPORT INFORMATION
  Report Type: 
  Country: None (occurrence: None)
  Receive Date: 20100323
  Receipt Date: 20100319
  Transmission Date: 20100710
  Serious: Yes (Other)
  Sender: FDA-Public Use
  Company Number: GXKR2010DE03222

PATIENT
  Age: 61 Year
  Sex: Female

DRUGS (3)
  1. AMOXICILLIN [Suspect]
     Indication: PERIODONTITIS
     Dosage: 500 MG, TID
     Route: 048
  2. METRONIDAZOLE [Suspect]
     Indication: PERIODONTITIS
     Dosage: 400 MG, TID
     Route: 048
  3. METO ^ISIS^ [Concomitant]
     Indication: HYPERTENSION
     Route: 048

REACTIONS (7)
  - ABDOMINAL PAIN UPPER [None]
  - BILIARY COLIC [None]
  - DIARRHOEA [None]
  - DIZZINESS [None]
  - HEADACHE [None]
  - NAUSEA [None]
  - NECK PAIN [None]
